FAERS Safety Report 4315601-9 (Version None)
Quarter: 2004Q1

REPORT INFORMATION
  Report Type: 
  Country: None (occurrence: None)
  Receive Date: 20040310
  Receipt Date: 20040227
  Transmission Date: 20041129
  Serious: Yes (Other)
  Sender: FDA-Public Use
  Company Number: ZONI001340

PATIENT
  Age: 59 Year
  Sex: Male

DRUGS (1)
  1. ZONEGRAN [Suspect]
     Indication: DRUG USE FOR UNKNOWN INDICATION
     Dosage: ORAL
     Route: 048
     Dates: start: 20031201, end: 20040101

REACTIONS (2)
  - BARRETT'S OESOPHAGUS [None]
  - CROHN'S DISEASE [None]
